FAERS Safety Report 7608903-1 (Version None)
Quarter: 2011Q3

REPORT INFORMATION
  Report Type: 
  Country: None (occurrence: None)
  Receive Date: 20110714
  Receipt Date: 20110708
  Transmission Date: 20111222
  Serious: Yes (Other)
  Sender: FDA-Public Use
  Company Number: US-PFIZER INC-2011153623

PATIENT
  Sex: Female
  Weight: 55.78 kg

DRUGS (2)
  1. KEPPRA [Suspect]
     Indication: GRAND MAL CONVULSION
     Dosage: UNK
     Dates: start: 20101001, end: 20110501
  2. DILANTIN [Suspect]
     Indication: GRAND MAL CONVULSION
     Dosage: 100 MG, 3X/DAY
     Route: 048
     Dates: start: 19770101, end: 20101001

REACTIONS (5)
  - SPINAL FRACTURE [None]
  - CONVULSION [None]
  - WEIGHT INCREASED [None]
  - DRUG INEFFECTIVE [None]
  - FALL [None]
